FAERS Safety Report 6508853-8 (Version None)
Quarter: 2009Q4

REPORT INFORMATION
  Report Type: 
  Country: None (occurrence: None)
  Receive Date: 20091221
  Receipt Date: 20090824
  Transmission Date: 20100525
  Serious: No
  Sender: FDA-Public Use
  Company Number: US-ASTRAZENECA-2009SE09485

PATIENT
  Age: 86 Year
  Sex: Female
  Weight: 86.2 kg

DRUGS (8)
  1. CRESTOR [Suspect]
     Indication: BLOOD CHOLESTEROL INCREASED
     Route: 048
  2. LEVOTHYROXINE SODIUM [Concomitant]
  3. METHOTREXATE [Concomitant]
  4. GLIMEPIRIDE [Concomitant]
  5. PAXIL [Concomitant]
  6. FOLIC ACID [Concomitant]
  7. SUPPLEMENTS [Concomitant]
  8. LISINOPRIL [Concomitant]

REACTIONS (6)
  - BODY HEIGHT DECREASED [None]
  - BONE PAIN [None]
  - FAECES DISCOLOURED [None]
  - FATIGUE [None]
  - HYPERHIDROSIS [None]
  - OEDEMA PERIPHERAL [None]
